FAERS Safety Report 6236386-5 (Version None)
Quarter: 2009Q2

REPORT INFORMATION
  Report Type: 
  Country: None (occurrence: None)
  Receive Date: 20090619
  Receipt Date: 20090605
  Transmission Date: 20091009
  Serious: Yes (Death, Hospitalization)
  Sender: FDA-Public Use
  Company Number: IT-GENENTECH-284651

PATIENT
  Sex: Female

DRUGS (3)
  1. BEVACIZUMAB [Suspect]
     Indication: BREAST CANCER METASTATIC
     Dosage: UNK
     Route: 042
     Dates: start: 20090428, end: 20090518
  2. CAPECITABINE [Suspect]
     Indication: BREAST CANCER METASTATIC
     Dosage: 1800 MG/KG, UNK
     Route: 048
     Dates: start: 20090428, end: 20090518
  3. DOCETAXEL [Suspect]
     Indication: BREAST CANCER METASTATIC
     Dosage: 60 MG/KG, UNK
     Route: 042
     Dates: start: 20090428, end: 20090518

REACTIONS (4)
  - CIRCULATORY COLLAPSE [None]
  - HYPOTENSION [None]
  - RENAL FAILURE [None]
  - SEPTIC SHOCK [None]
